FAERS Safety Report 4553729-9 (Version None)
Quarter: 2005Q1

REPORT INFORMATION
  Report Type: 
  Country: None (occurrence: None)
  Receive Date: 20050114
  Receipt Date: 20050114
  Transmission Date: 20050727
  Serious: Yes (Other)
  Sender: FDA-Public Use
  Company Number: None

PATIENT
  Age: 51 Year
  Sex: Female
  Weight: 102.9665 kg

DRUGS (2)
  1. ZICAM SWABS ZICAM [Suspect]
     Indication: NASOPHARYNGITIS
     Dosage: ONE SWAB EVERY 4 HOURS NASAL
     Route: 045
     Dates: start: 20041112, end: 20041119
  2. ZICAM SWABS ZICAM [Suspect]
     Indication: PROPHYLAXIS
     Dosage: ONE SWAB EVERY 4 HOURS NASAL
     Route: 045
     Dates: start: 20041112, end: 20041119

REACTIONS (1)
  - ANOSMIA [None]
